FAERS Safety Report 7990326 (Version 2)
Quarter: 2013Q2

REPORT INFORMATION
  Report Type: Spontaneous
  Country: US (occurrence: US)
  Receive Date: 20110614
  Receipt Date: 20130522
  Transmission Date: 20140414
  Serious: Yes (Other)
  Sender: FDA-Public Use
  Company Number: US-ROCHE-736001

PATIENT
  Age: 34 Year
  Sex: Male
  Weight: 90.7 kg

DRUGS (1)
  1. ACCUTANE [Suspect]
     Indication: ACNE
     Route: 065
     Dates: start: 19890601, end: 19900601

REACTIONS (5)
  - Colitis ulcerative [Unknown]
  - Gastrointestinal injury [Unknown]
  - Inflammatory bowel disease [Unknown]
  - Depression [Unknown]
  - Large intestine polyp [Unknown]
